FAERS Safety Report 11995580 (Version 5)
Quarter: 2016Q4

REPORT INFORMATION
  Report Type: Report from Study
  Country: US (occurrence: US)
  Receive Date: 20160203
  Receipt Date: 20161208
  Transmission Date: 20170206
  Serious: Yes (Other)
  Sender: FDA-Public Use
  Company Number: US-SA-2016SA014985

PATIENT
  Age: 51 Year
  Sex: Male

DRUGS (7)
  1. AMPYRA [Concomitant]
     Active Substance: DALFAMPRIDINE
     Indication: MULTIPLE SCLEROSIS
     Dosage: DATE STARTED: 3-4 YEARS
  2. BACLOFEN. [Concomitant]
     Active Substance: BACLOFEN
     Indication: MUSCLE RELAXANT THERAPY
     Dosage: 10 1 OR 2 EVERY 8 HOURS
     Dates: start: 20150822
  3. ACYCLOVIR. [Concomitant]
     Active Substance: ACYCLOVIR
     Indication: MULTIPLE SCLEROSIS
     Dates: start: 20151214, end: 20160615
  4. TYLENOL WITH CODEINE [Concomitant]
     Active Substance: ACETAMINOPHEN\CODEINE PHOSPHATE
     Indication: PAIN
  5. LYRICA [Concomitant]
     Active Substance: PREGABALIN
     Indication: PAIN
  6. AMBIEN [Concomitant]
     Active Substance: ZOLPIDEM TARTRATE
     Indication: SLEEP DISORDER
  7. LEMTRADA [Suspect]
     Active Substance: ALEMTUZUMAB
     Indication: MULTIPLE SCLEROSIS
     Route: 041
     Dates: start: 20151214, end: 20151218

REACTIONS (21)
  - Abnormal behaviour [Unknown]
  - Blood pressure increased [Recovered/Resolved]
  - Haematuria [Not Recovered/Not Resolved]
  - Visual impairment [Recovered/Resolved]
  - Hyperhidrosis [Recovered/Resolved]
  - Asthenia [Recovered/Resolved]
  - Diplopia [Recovered/Resolved]
  - Pyrexia [Recovered/Resolved]
  - Diarrhoea [Recovered/Resolved]
  - Heart rate increased [Recovered/Resolved]
  - Red blood cell count abnormal [Recovering/Resolving]
  - Pain [Not Recovered/Not Resolved]
  - Dizziness [Not Recovered/Not Resolved]
  - Rash [Recovered/Resolved]
  - Ill-defined disorder [Recovered/Resolved]
  - Motor dysfunction [Unknown]
  - White blood cell count abnormal [Recovered/Resolved]
  - Paraplegia [Not Recovered/Not Resolved]
  - Arthropathy [Recovered/Resolved]
  - Dysstasia [Not Recovered/Not Resolved]
  - Depression [Not Recovered/Not Resolved]

NARRATIVE: CASE EVENT DATE: 2015
